FAERS Safety Report 8305146-3 (Version None)
Quarter: 2012Q2

REPORT INFORMATION
  Report Type: 
  Country: None (occurrence: None)
  Receive Date: 20120423
  Receipt Date: 20100526
  Transmission Date: 20120825
  Serious: Yes (Other)
  Sender: FDA-Public Use
  Company Number: US-B.I. PHARMACEUTICALS,INC./RIDGEFIELD-2010-BP-04993BP

PATIENT
  Age: 50 Year
  Sex: Female
  Weight: 119.6 kg

DRUGS (13)
  1. PREMARIN [Concomitant]
     Dosage: 0.3 MG
     Dates: start: 20100326
  2. BONIVA [Concomitant]
     Dates: start: 20100326
  3. MULTIPLE VITAMIN [Concomitant]
     Dates: start: 20100326
  4. DULCOLAX [Suspect]
     Indication: COLONOSCOPY
     Dosage: 10 MG
     Route: 048
     Dates: start: 20100411, end: 20100412
  5. FEXOFENADINE [Concomitant]
     Dosage: 180 MG
     Dates: start: 20100326
  6. NASACORT AQ [Concomitant]
     Dates: start: 20100326
  7. TOPAMAX [Concomitant]
     Dates: start: 20100326
  8. ALLERGY SHOTS [Concomitant]
     Dates: start: 20100326
  9. HALFLYTELY [Suspect]
     Indication: COLONOSCOPY
     Route: 048
     Dates: start: 20100412, end: 20100412
  10. ACEON [Concomitant]
     Dosage: 8 MG
     Dates: start: 20100326
  11. NEXIUM [Concomitant]
     Dates: start: 20100326
  12. HYDROCHLOROTHIAZIDE [Concomitant]
     Dates: start: 20100326, end: 20100416
  13. CALCIUM WITH D [Concomitant]
     Dates: start: 20100326

REACTIONS (8)
  - FREQUENT BOWEL MOVEMENTS [None]
  - RECTAL HAEMORRHAGE [None]
  - PYREXIA [None]
  - NAUSEA [None]
  - ASTHENIA [None]
  - MUSCLE SPASMS [None]
  - ABDOMINAL PAIN [None]
  - COLITIS ISCHAEMIC [None]
